FAERS Safety Report 24066209 (Version 2)
Quarter: 2024Q3

REPORT INFORMATION
  Report Type: Spontaneous
  Country: FR (occurrence: FR)
  Receive Date: 20240709
  Receipt Date: 20240816
  Transmission Date: 20241017
  Serious: No
  Sender: JOHNSON AND JOHNSON
  Company Number: FR-JNJFOC-20240710406

PATIENT

DRUGS (18)
  1. STELARA [Suspect]
     Active Substance: USTEKINUMAB
     Indication: Product used for unknown indication
     Dosage: STRENGTH: UNKNOWN
     Route: 058
  2. STELARA [Suspect]
     Active Substance: USTEKINUMAB
  3. STELARA [Suspect]
     Active Substance: USTEKINUMAB
  4. STELARA [Suspect]
     Active Substance: USTEKINUMAB
  5. STELARA [Suspect]
     Active Substance: USTEKINUMAB
  6. STELARA [Suspect]
     Active Substance: USTEKINUMAB
  7. STELARA [Suspect]
     Active Substance: USTEKINUMAB
     Indication: Product used for unknown indication
     Dosage: STRENGTH: UNKNOWN
     Route: 058
  8. STELARA [Suspect]
     Active Substance: USTEKINUMAB
  9. STELARA [Suspect]
     Active Substance: USTEKINUMAB
  10. STELARA [Suspect]
     Active Substance: USTEKINUMAB
  11. STELARA [Suspect]
     Active Substance: USTEKINUMAB
  12. STELARA [Suspect]
     Active Substance: USTEKINUMAB
  13. STELARA [Suspect]
     Active Substance: USTEKINUMAB
     Indication: Product used for unknown indication
     Dosage: STRENGTH: UNKNOWN
     Route: 058
  14. STELARA [Suspect]
     Active Substance: USTEKINUMAB
  15. STELARA [Suspect]
     Active Substance: USTEKINUMAB
  16. STELARA [Suspect]
     Active Substance: USTEKINUMAB
  17. STELARA [Suspect]
     Active Substance: USTEKINUMAB
  18. STELARA [Suspect]
     Active Substance: USTEKINUMAB

REACTIONS (1)
  - Device defective [Unknown]
